FAERS Safety Report 23224537 (Version 3)
Quarter: 2024Q1

REPORT INFORMATION
  Report Type: Spontaneous
  Country: CH (occurrence: CH)
  Receive Date: 20231124
  Receipt Date: 20240306
  Transmission Date: 20240410
  Serious: Yes (Other)
  Sender: FDA-Public Use
  Company Number: CH-JNJFOC-20231155130

PATIENT
  Age: 75 Year
  Weight: 37 kg

DRUGS (1)
  1. STELARA [Suspect]
     Active Substance: USTEKINUMAB
     Indication: Crohn^s disease
     Route: 040
     Dates: start: 20231031, end: 20231031

REACTIONS (3)
  - Respiratory failure [Unknown]
  - Infusion related reaction [Unknown]
  - Hypersensitivity [Unknown]
